FAERS Safety Report 10901206 (Version 1)
Quarter: 2015Q1

REPORT INFORMATION
  Report Type: Spontaneous
  Country: US (occurrence: US)
  Receive Date: 20150310
  Receipt Date: 20150310
  Transmission Date: 20150721
  Serious: Yes (Other)
  Sender: FDA-Public Use
  Company Number: US-ABBVIE-15P-163-1356012-00

PATIENT

DRUGS (1)
  1. ANDROGEL [Suspect]
     Active Substance: TESTOSTERONE
     Indication: PRODUCT USED FOR UNKNOWN INDICATION
     Route: 065

REACTIONS (10)
  - Emotional distress [Unknown]
  - Myocardial infarction [Unknown]
  - Economic problem [Unknown]
  - Impaired work ability [Unknown]
  - Thrombosis [Unknown]
  - Pain [Unknown]
  - Injury [Unknown]
  - Social problem [Unknown]
  - Cardiac disorder [Unknown]
  - Tension [Unknown]

NARRATIVE: CASE EVENT DATE: 201403
